FAERS Safety Report 7876306-0 (Version None)
Quarter: 2011Q4

REPORT INFORMATION
  Report Type: 
  Country: None (occurrence: None)
  Receive Date: 20111031
  Receipt Date: 20111024
  Transmission Date: 20120403
  Serious: Yes (Other)
  Sender: FDA-Public Use
  Company Number: JP-MERCK-1107USA04008

PATIENT
  Age: 81 Year
  Sex: Female

DRUGS (8)
  1. DIOVAN [Concomitant]
     Route: 048
     Dates: start: 20050401
  2. ZETIA [Suspect]
     Indication: HYPERCHOLESTEROLAEMIA
     Route: 048
     Dates: start: 20110601, end: 20110727
  3. SIGMART [Concomitant]
     Route: 048
     Dates: start: 20050401
  4. DEPAS [Concomitant]
     Route: 048
     Dates: start: 20050401
  5. ASPIRIN [Concomitant]
     Route: 048
     Dates: start: 20050401
  6. NIZATIDINE [Concomitant]
     Route: 048
     Dates: start: 20050401
  7. LIPITOR [Concomitant]
     Route: 048
     Dates: start: 20050401
  8. ADALAT [Concomitant]
     Route: 048
     Dates: start: 20050401

REACTIONS (1)
  - DEAFNESS [None]
